FAERS Safety Report 6031982-2 (Version None)
Quarter: 2009Q1

REPORT INFORMATION
  Report Type: 
  Country: None (occurrence: None)
  Receive Date: 20090107
  Receipt Date: 20081222
  Transmission Date: 20090719
  Serious: Yes (Death)
  Sender: FDA-Public Use
  Company Number: 8040769

PATIENT
  Age: 18 Year
  Sex: Female

DRUGS (1)
  1. KEPPRA [Suspect]
     Indication: EPILEPSY
     Dosage: 2500 MG /D
     Dates: start: 20070601, end: 20081218

REACTIONS (1)
  - SUDDEN DEATH [None]
